FAERS Safety Report 16227425 (Version 1)
Quarter: 2019Q2

REPORT INFORMATION
  Report Type: Report from Study
  Country: US (occurrence: US)
  Receive Date: 20190423
  Receipt Date: 20190423
  Transmission Date: 20190711
  Serious: Yes (Hospitalization)
  Sender: FDA-Public Use
  Company Number: US-GILEAD-2019-0393150

PATIENT
  Age: 82 Year
  Sex: Female

DRUGS (15)
  1. VITAMIN D [COLECALCIFEROL] [Concomitant]
     Active Substance: CHOLECALCIFEROL
  2. UPTRAVI [Concomitant]
     Active Substance: SELEXIPAG
  3. AMBRISENTAN [Suspect]
     Active Substance: AMBRISENTAN
     Indication: PULMONARY ARTERIAL HYPERTENSION
     Dosage: 10 MG, QD
     Route: 065
     Dates: start: 20180130
  4. SYNTHROID [Concomitant]
     Active Substance: LEVOTHYROXINE SODIUM
  5. DIGOXIN. [Concomitant]
     Active Substance: DIGOXIN
  6. METFORMIN [Concomitant]
     Active Substance: METFORMIN HYDROCHLORIDE
  7. FUROSEMIDE. [Concomitant]
     Active Substance: FUROSEMIDE
  8. TADALAFIL. [Suspect]
     Active Substance: TADALAFIL
     Indication: PULMONARY ARTERIAL HYPERTENSION
     Route: 065
     Dates: start: 20190326
  9. CARVEDILOL. [Concomitant]
     Active Substance: CARVEDILOL
  10. ADCIRCA [Suspect]
     Active Substance: TADALAFIL
     Indication: PULMONARY ARTERIAL HYPERTENSION
     Dosage: 40 MG, QD
     Route: 065
     Dates: start: 20171222
  11. ASPIRIN [ACETYLSALICYLIC ACID] [Concomitant]
     Active Substance: ASPIRIN
  12. KLOR-CON/EF [Concomitant]
     Active Substance: POTASSIUM BICARBONATE
  13. DOXYCYCLIN [DOXYCYCLINE] [Concomitant]
  14. MAG-OX [Concomitant]
     Active Substance: MAGNESIUM OXIDE
  15. ATORVASTATIN [Concomitant]
     Active Substance: ATORVASTATIN

REACTIONS (8)
  - Nasal congestion [Not Recovered/Not Resolved]
  - Gait disturbance [Not Recovered/Not Resolved]
  - Peripheral swelling [Not Recovered/Not Resolved]
  - Feeling abnormal [Unknown]
  - Vertigo [Not Recovered/Not Resolved]
  - Upper respiratory tract infection [Unknown]
  - Ear congestion [Not Recovered/Not Resolved]
  - Ill-defined disorder [Not Recovered/Not Resolved]

NARRATIVE: CASE EVENT DATE: 20190211
